FAERS Safety Report 7175870-7 (Version None)
Quarter: 2010Q4

REPORT INFORMATION
  Report Type: 
  Country: None (occurrence: None)
  Receive Date: 20101220
  Receipt Date: 20100423
  Transmission Date: 20110411
  Serious: No
  Sender: FDA-Public Use
  Company Number: US-AMGEN-TCS402566

PATIENT

DRUGS (4)
  1. ENBREL [Suspect]
     Indication: JUVENILE ARTHRITIS
     Dosage: 50 MG, QWK
     Route: 058
     Dates: start: 19990101
  2. IBUPROFEN [Concomitant]
     Dosage: UNK UNK, UNK
     Dates: start: 20090101
  3. PREDNISONE [Concomitant]
     Dosage: 15 MG, QID
     Dates: start: 20091008
  4. FOLIC ACID [Concomitant]

REACTIONS (10)
  - ARTHRALGIA [None]
  - EXCORIATION [None]
  - HYPOTHYROIDISM [None]
  - INJECTION SITE ERYTHEMA [None]
  - INJECTION SITE PAIN [None]
  - INJECTION SITE PRURITUS [None]
  - NASOPHARYNGITIS [None]
  - RASH [None]
  - SKIN HAEMORRHAGE [None]
  - VITAMIN D DEFICIENCY [None]
